FAERS Safety Report 8389823-4 (Version None)
Quarter: 2012Q2

REPORT INFORMATION
  Report Type: 
  Country: None (occurrence: None)
  Receive Date: 20120524
  Receipt Date: 20120524
  Transmission Date: 20120825
  Serious: Yes (Hospitalization)
  Sender: FDA-Public Use
  Company Number: None

PATIENT
  Sex: Male
  Weight: 98.1 kg

DRUGS (1)
  1. CISPLATIN [Suspect]
     Dosage: 188 MG

REACTIONS (6)
  - SPUTUM PURULENT [None]
  - HYPONATRAEMIA [None]
  - BRONCHITIS [None]
  - RESPIRATORY TRACT INFECTION [None]
  - ASTHENIA [None]
  - CHILLS [None]
